FAERS Safety Report 9973480 (Version 2)
Quarter: 2014Q1

REPORT INFORMATION
  Report Type: Spontaneous
  Country: US (occurrence: US)
  Receive Date: 20140306
  Receipt Date: 20140313
  Transmission Date: 20141002
  Serious: Yes (Hospitalization)
  Sender: FDA-Public Use
  Company Number: US-BAXTER-2014BAX010484

PATIENT
  Sex: Female

DRUGS (2)
  1. DIANEAL LOW CALCIUM [Suspect]
     Indication: PERITONEAL DIALYSIS
     Route: 033
     Dates: start: 201301, end: 201402
  2. DIANEAL LOW CALCIUM [Suspect]
     Dosage: LAST FILL
     Route: 033
     Dates: start: 201301, end: 201402

REACTIONS (3)
  - Tachycardia [Recovered/Resolved]
  - Staphylococcal infection [Recovered/Resolved]
  - Device related infection [Recovered/Resolved]
